FAERS Safety Report 9950061 (Version 1)
Quarter: 2014Q1

REPORT INFORMATION
  Report Type: Report from Study
  Country: US (occurrence: US)
  Receive Date: 20140304
  Receipt Date: 20140304
  Transmission Date: 20141002
  Serious: No
  Sender: FDA-Public Use
  Company Number: US-ABBVIE-13P-163-1066433-00

PATIENT
  Age: 60 Year
  Sex: Male

DRUGS (18)
  1. HUMIRA [Suspect]
     Dates: start: 200809
  2. HUMIRA [Suspect]
     Dosage: LOADING DOSE OF 80MG
     Dates: start: 20130316
  3. CRESTOR [Concomitant]
     Indication: BLOOD CHOLESTEROL INCREASED
  4. PROZAC [Concomitant]
     Indication: INSOMNIA
     Dosage: 20 MG QHS
  5. NEXIUM [Concomitant]
     Indication: GASTROOESOPHAGEAL REFLUX DISEASE
  6. SINGULAIR [Concomitant]
     Indication: HYPERSENSITIVITY
  7. LYRICA [Concomitant]
     Indication: RESTLESS LEGS SYNDROME
  8. LYRICA [Concomitant]
     Indication: NEUROPATHY PERIPHERAL
  9. NORCO [Concomitant]
     Indication: BACK PAIN
     Dosage: 7.5/325MG BID PRN
  10. NORCO [Concomitant]
     Indication: SPINAL COLUMN STENOSIS
  11. FOLIC ACID [Concomitant]
     Indication: PRODUCT USED FOR UNKNOWN INDICATION
  12. MULTIVITAMINS [Concomitant]
     Indication: EYE DISORDER
  13. DOUBLE X [Concomitant]
     Indication: ARTHROPATHY
  14. ASA [Concomitant]
     Indication: PROPHYLAXIS
  15. BENICAR [Concomitant]
     Indication: HYPERTENSION
     Dosage: 40MG/25/5 DAILY
     Dates: start: 2012
  16. TESTOSTERONE [Concomitant]
     Indication: BLOOD TESTOSTERONE DECREASED
     Dosage: 2 PUMPS DAILY
     Route: 061
  17. ROPINIROLE [Concomitant]
     Indication: SLEEP APNOEA SYNDROME
     Dosage: 1 MG DAILY
  18. METFORMIN ER [Concomitant]
     Indication: GLUCOSE TOLERANCE IMPAIRED
     Dosage: 500 MG DAILY

REACTIONS (2)
  - Drug ineffective [Unknown]
  - Injection site pain [Unknown]
